FAERS Safety Report 11711266 (Version 1)
Quarter: 2015Q4

REPORT INFORMATION
  Report Type: Spontaneous
  Country: US (occurrence: US)
  Receive Date: 20151104
  Receipt Date: 20151104
  Transmission Date: 20160304
  Serious: No
  Sender: FDA-Public Use
  Company Number: US-ELI_LILLY_AND_COMPANY-US201105004781

PATIENT
  Sex: Female

DRUGS (1)
  1. FORTEO [Suspect]
     Active Substance: TERIPARATIDE
     Indication: OSTEOPOROSIS
     Dosage: 20 UG, QD
     Dates: start: 20110427

REACTIONS (5)
  - Diarrhoea [Recovered/Resolved]
  - Addison^s disease [Unknown]
  - Vomiting [Recovered/Resolved]
  - Intentional product misuse [Unknown]
  - Abdominal pain upper [Unknown]
